FAERS Safety Report 8177764-7 (Version None)
Quarter: 2012Q1

REPORT INFORMATION
  Report Type: 
  Country: None (occurrence: None)
  Receive Date: 20120301
  Receipt Date: 20120216
  Transmission Date: 20120608
  Serious: Yes (Other)
  Sender: FDA-Public Use
  Company Number: US-MYLANLABS-2012S1003625

PATIENT
  Age: 18 Year
  Sex: Female

DRUGS (2)
  1. VANCOMYCIN [Suspect]
     Route: 065
  2. CEFEPIME [Concomitant]
     Route: 065

REACTIONS (3)
  - PYREXIA [None]
  - DERMATITIS EXFOLIATIVE [None]
  - LYMPHADENOPATHY [None]
